FAERS Safety Report 8226843-4 (Version None)
Quarter: 2012Q1

REPORT INFORMATION
  Report Type: 
  Country: None (occurrence: None)
  Receive Date: 20120322
  Receipt Date: 20120314
  Transmission Date: 20120608
  Serious: Yes (Life-Threatening, Hospitalization)
  Sender: FDA-Public Use
  Company Number: US-BAYER-201020152NA

PATIENT
  Age: 30 Year
  Sex: Female
  Weight: 83 kg

DRUGS (5)
  1. PHENERGAN [Concomitant]
  2. METFORMIN HCL [Concomitant]
     Indication: POLYCYSTIC OVARIES
  3. PARAGARD T 380A [Concomitant]
     Dosage: UNK
     Route: 015
     Dates: start: 20080601, end: 20090701
  4. YAZ [Suspect]
     Indication: CONTRACEPTION
     Dosage: 1 DF, QD
     Route: 048
  5. PERCOCET [Concomitant]

REACTIONS (3)
  - MUSCULOSKELETAL PAIN [None]
  - PULMONARY EMBOLISM [None]
  - BACK PAIN [None]
